FAERS Safety Report 23090918 (Version 3)
Quarter: 2023Q4

REPORT INFORMATION
  Report Type: Report from Study
  Country: TH (occurrence: TH)
  Receive Date: 20231020
  Receipt Date: 20231120
  Transmission Date: 20240109
  Serious: Yes (Death, Hospitalization)
  Sender: FDA-Public Use
  Company Number: TH-Eisai-EC-2023-148827

PATIENT
  Age: 62 Year
  Sex: Male

DRUGS (1)
  1. LENVIMA [Suspect]
     Active Substance: LENVATINIB
     Indication: Hepatocellular carcinoma
     Route: 048
     Dates: start: 20230405, end: 20230912

REACTIONS (7)
  - Jaundice [Unknown]
  - Feeding disorder [Unknown]
  - Pain [Unknown]
  - Death [Fatal]
  - Loss of consciousness [Not Recovered/Not Resolved]
  - Asthenia [Not Recovered/Not Resolved]
  - Cerebral artery stenosis [Not Recovered/Not Resolved]

NARRATIVE: CASE EVENT DATE: 20230912
